FAERS Safety Report 13647074 (Version 1)
Quarter: 2017Q2

REPORT INFORMATION
  Report Type: Spontaneous
  Country: US (occurrence: US)
  Receive Date: 20170613
  Receipt Date: 20170613
  Transmission Date: 20170830
  Serious: Yes (Other)
  Sender: FDA-Public Use
  Company Number: None

PATIENT
  Age: 30 Year
  Sex: Female
  Weight: 59.4 kg

DRUGS (2)
  1. MOVANTIK [Suspect]
     Active Substance: NALOXEGOL OXALATE
     Indication: CONSTIPATION
     Dosage: ?          QUANTITY:1 TABLET(S);?
     Route: 048
     Dates: start: 20170611, end: 20170613
  2. METHADONE [Concomitant]
     Active Substance: METHADONE HYDROCHLORIDE

REACTIONS (10)
  - Loss of consciousness [None]
  - Chills [None]
  - Abdominal pain [None]
  - Anxiety [None]
  - Dizziness [None]
  - Hyperhidrosis [None]
  - Insomnia [None]
  - Piloerection [None]
  - Diarrhoea [None]
  - Frequent bowel movements [None]

NARRATIVE: CASE EVENT DATE: 20170612
